FAERS Safety Report 26181672 (Version 1)
Quarter: 2025Q4

REPORT INFORMATION
  Report Type: Spontaneous
  Country: US (occurrence: US)
  Receive Date: 20251221
  Receipt Date: 20251221
  Transmission Date: 20260118
  Serious: No
  Sender: GLAUKOS
  Company Number: US-GLK-000713

PATIENT
  Age: 69 Year
  Sex: Female

DRUGS (1)
  1. IDOSE TR [Suspect]
     Active Substance: TRAVOPROST
     Indication: Product used for unknown indication
     Dosage: BOTH EYES
     Route: 047

REACTIONS (2)
  - Eye pain [Unknown]
  - Photophobia [Unknown]
